FAERS Safety Report 21892501 (Version 1)
Quarter: 2023Q1

REPORT INFORMATION
  Report Type: Spontaneous
  Country: GB (occurrence: GB)
  Receive Date: 20230120
  Receipt Date: 20230120
  Transmission Date: 20230417
  Serious: Yes (Other)
  Sender: FDA-Public Use
  Company Number: GB-MHRA-MED-202301160743451500-FHRBZ

PATIENT
  Sex: Female

DRUGS (1)
  1. CITALOPRAM HYDROBROMIDE [Suspect]
     Active Substance: CITALOPRAM HYDROBROMIDE
     Indication: Depression suicidal
     Dosage: 20 MG

REACTIONS (3)
  - Nightmare [Unknown]
  - Abnormal dreams [Not Recovered/Not Resolved]
  - Insomnia [Unknown]
